FAERS Safety Report 8463041-3 (Version None)
Quarter: 2012Q2

REPORT INFORMATION
  Report Type: 
  Country: None (occurrence: None)
  Receive Date: 20120625
  Receipt Date: 20100113
  Transmission Date: 20120825
  Serious: Yes (Other)
  Sender: FDA-Public Use
  Company Number: BR-ROCHE-680492

PATIENT
  Sex: Female
  Weight: 48 kg

DRUGS (3)
  1. SIMVASTATIN [Concomitant]
     Indication: BLOOD CHOLESTEROL ABNORMAL
  2. LEXOTAN [Concomitant]
     Indication: ANXIETY
  3. BONIVA [Suspect]
     Indication: OSTEOPOROSIS
     Route: 048

REACTIONS (4)
  - SHOULDER DEFORMITY [None]
  - SPINAL DEFORMITY [None]
  - ABDOMINAL DISTENSION [None]
  - MOVEMENT DISORDER [None]
